FAERS Safety Report 9429687 (Version 1)
Quarter: 2013Q3

REPORT INFORMATION
  Report Type: Spontaneous
  Country: US (occurrence: US)
  Receive Date: 20130730
  Receipt Date: 20130730
  Transmission Date: 20140515
  Serious: No
  Sender: FDA-Public Use
  Company Number: US-ABBOTT-13P-163-1070188-00

PATIENT
  Age: 58 Year
  Sex: Male
  Weight: 98.52 kg

DRUGS (9)
  1. NIASPAN (COATED) [Suspect]
     Indication: BLOOD TRIGLYCERIDES INCREASED
     Dates: start: 20130317
  2. NIASPAN (COATED) [Suspect]
     Indication: HIGH DENSITY LIPOPROTEIN DECREASED
  3. CRESTOR [Concomitant]
     Indication: BLOOD CHOLESTEROL INCREASED
  4. GRALISE [Concomitant]
     Indication: DIABETES MELLITUS
  5. METHYLFLO/ME [Concomitant]
     Indication: PRODUCT USED FOR UNKNOWN INDICATION
  6. BISOTRL MCTZ [Concomitant]
     Indication: PRODUCT USED FOR UNKNOWN INDICATION
  7. GLIMEPERIDE [Concomitant]
     Indication: DIABETES MELLITUS
  8. AZOR [Concomitant]
     Indication: PRODUCT USED FOR UNKNOWN INDICATION
  9. KOMBIGLYZE [Concomitant]
     Indication: PRODUCT USED FOR UNKNOWN INDICATION

REACTIONS (1)
  - Pain in extremity [Not Recovered/Not Resolved]
